FAERS Safety Report 21310994 (Version 1)
Quarter: 2022Q3

REPORT INFORMATION
  Report Type: Spontaneous
  Country: US (occurrence: None)
  Receive Date: 20220909
  Receipt Date: 20220909
  Transmission Date: 20221026
  Serious: No
  Sender: FDA-Public Use
  Company Number: US-ARIS GLOBAL-202112-2332

PATIENT
  Sex: Female

DRUGS (14)
  1. OXERVATE [Suspect]
     Active Substance: CENEGERMIN-BKBJ
     Indication: Neurotrophic keratopathy
     Route: 047
     Dates: start: 20211209
  2. MELATONIN [Concomitant]
     Active Substance: MELATONIN
  3. MOXATAG [Concomitant]
     Active Substance: AMOXICILLIN
     Dosage: EXTENDED RELEASE MULTIPHASE 24 H
  4. XIIDRA [Concomitant]
     Active Substance: LIFITEGRAST
  5. CICLOPIROX [Concomitant]
     Active Substance: CICLOPIROX
  6. KETOCONAZOLE [Concomitant]
     Active Substance: KETOCONAZOLE
  7. CLINDAMYCIN HYDROCHLORIDE [Concomitant]
     Active Substance: CLINDAMYCIN HYDROCHLORIDE
  8. LEVALBUTEROL TARTRATE [Concomitant]
     Active Substance: LEVALBUTEROL TARTRATE
  9. SYMBICORT [Concomitant]
     Active Substance: BUDESONIDE\FORMOTEROL FUMARATE DIHYDRATE
     Dosage: 160-4.5 MCG  HYDROFLUOROALKANE AEROSOL WITH ADAPTER
  10. PATADAY ONCE DAILY RELIEF [Concomitant]
     Active Substance: OLOPATADINE HYDROCHLORIDE
  11. FEXOFENADINE HCL [Concomitant]
     Active Substance: FEXOFENADINE HYDROCHLORIDE
  12. SINGULAIR [Concomitant]
     Active Substance: MONTELUKAST SODIUM
  13. BUSPIRONE HCL [Concomitant]
     Active Substance: BUSPIRONE HYDROCHLORIDE
  14. MIRTAZAPINE [Concomitant]
     Active Substance: MIRTAZAPINE

REACTIONS (3)
  - Lacrimation increased [Unknown]
  - Product dose omission issue [Unknown]
  - COVID-19 [Unknown]
